FAERS Safety Report 11651857 (Version 1)
Quarter: 2015Q4

REPORT INFORMATION
  Report Type: Spontaneous
  Country: US (occurrence: US)
  Receive Date: 20151022
  Receipt Date: 20151022
  Transmission Date: 20160304
  Serious: No
  Sender: FDA-Public Use
  Company Number: US-BAYER-2015-449042

PATIENT
  Age: 86 Year
  Sex: Male
  Weight: 77.98 kg

DRUGS (2)
  1. MIRALAX [Suspect]
     Active Substance: POLYETHYLENE GLYCOL 3350
     Indication: CONSTIPATION
     Dosage: UNK FOR 4-5 DAYS
     Route: 048
     Dates: start: 201510, end: 20151019
  2. MIRALAX [Suspect]
     Active Substance: POLYETHYLENE GLYCOL 3350
     Indication: CONSTIPATION
     Dosage: 3 DF FOR 5-6 DAYS
     Route: 048
     Dates: start: 201510, end: 20151019

REACTIONS (1)
  - Product use issue [None]

NARRATIVE: CASE EVENT DATE: 201510
